FAERS Safety Report 5800696-3 (Version None)
Quarter: 2008Q3

REPORT INFORMATION
  Report Type: 
  Country: None (occurrence: None)
  Receive Date: 20080703
  Receipt Date: 20080624
  Transmission Date: 20090109
  Serious: Yes (Hospitalization, Disabling)
  Sender: FDA-Public Use
  Company Number: JP-ABBOTT-08P-087-0460340-00

PATIENT
  Age: 80 Year
  Sex: Male

DRUGS (7)
  1. LEUPROLIDE ACETATE [Suspect]
     Indication: PROSTATE CANCER STAGE II
     Route: 058
     Dates: start: 20060710, end: 20080310
  2. LEUPROLIDE ACETATE [Suspect]
     Route: 058
     Dates: start: 20050422, end: 20060313
  3. DISOPYRAMIDE [Concomitant]
     Indication: ARRHYTHMIA
     Route: 048
     Dates: end: 20080310
  4. PROPRANOLOL [Concomitant]
     Indication: ARRHYTHMIA
     Route: 048
     Dates: end: 20080310
  5. FAMOTIDINE [Concomitant]
     Indication: GASTRITIS
     Route: 048
     Dates: end: 20080310
  6. BROTIZOLAM [Concomitant]
     Indication: INSOMNIA
     Route: 048
     Dates: end: 20080310
  7. FENOFIBRATE [Concomitant]
     Indication: HYPERLIPIDAEMIA
     Route: 048
     Dates: start: 20070326, end: 20080310

REACTIONS (2)
  - CEREBRAL INFARCTION [None]
  - COMMUNICATION DISORDER [None]
